FAERS Safety Report 23743440 (Version 1)
Quarter: 2024Q2

REPORT INFORMATION
  Report Type: Spontaneous
  Country: US (occurrence: None)
  Receive Date: 20240413
  Receipt Date: 20240413
  Transmission Date: 20240716
  Serious: Yes (unspecified)
  Sender: FDA-Public Use
  Company Number: None

PATIENT
  Age: 67 Year
  Sex: Female
  Weight: 68.4 kg

DRUGS (10)
  1. PROLIA [Suspect]
     Active Substance: DENOSUMAB
     Indication: Osteoporosis
     Dosage: 1 INJECTIN EVERY 6 MONTHS SUBCUTANEOUS?
     Route: 058
     Dates: start: 20240212, end: 20240212
  2. CLCIUM [Concomitant]
  3. VITAMIN D NOS [Concomitant]
     Active Substance: VITAMIN D NOS
  4. VITAMIN D NOS [Concomitant]
     Active Substance: VITAMIN D NOS
  5. VITAMIN C [Concomitant]
     Active Substance: ASCORBIC ACID
  6. MAGNESIUM [Concomitant]
     Active Substance: MAGNESIUM
  7. MULTI V [Concomitant]
  8. MULTI V [Concomitant]
  9. MULTI V [Concomitant]
  10. ZINC [Concomitant]
     Active Substance: PYRITHIONE ZINC\ZINC\ZINC CHLORIDE

REACTIONS (13)
  - Pain [None]
  - Chills [None]
  - Headache [None]
  - Noninfective gingivitis [None]
  - Abdominal discomfort [None]
  - Abdominal pain upper [None]
  - Arthralgia [None]
  - Arthralgia [None]
  - Arthralgia [None]
  - Pain [None]
  - Dizziness [None]
  - Post procedural complication [None]
  - Diarrhoea [None]

NARRATIVE: CASE EVENT DATE: 20240215
